FAERS Safety Report 8933719 (Version 3)
Quarter: 2013Q1

REPORT INFORMATION
  Report Type: Spontaneous
  Country: US (occurrence: US)
  Receive Date: 20121129
  Receipt Date: 20130208
  Transmission Date: 20140127
  Serious: Yes (Death, Other)
  Sender: FDA-Public Use
  Company Number: US-ELI_LILLY_AND_COMPANY-US201211006400

PATIENT
  Age: 81 Year
  Sex: Female
  Weight: 44.44 kg

DRUGS (1)
  1. FORTEO [Suspect]
     Indication: OSTEOPOROSIS
     Dosage: 20 UG, QD
     Route: 058
     Dates: start: 20110810

REACTIONS (3)
  - Coronary artery disease [Fatal]
  - Cardiac failure congestive [Unknown]
  - Cardiac valve disease [Unknown]
